FAERS Safety Report 8562413-6 (Version None)
Quarter: 2012Q3

REPORT INFORMATION
  Report Type: 
  Country: None (occurrence: None)
  Receive Date: 20120802
  Receipt Date: 20120703
  Transmission Date: 20120928
  Serious: No
  Sender: FDA-Public Use
  Company Number: US-AMGEN-USASP2011065179

PATIENT
  Age: 63 Year
  Sex: Female
  Weight: 66.667 kg

DRUGS (17)
  1. DYNACIRC [Concomitant]
     Dosage: 5 MG, QD
     Dates: start: 20100611
  2. LIPITOR [Concomitant]
     Dosage: 10 MG, QHS
  3. SERTRALINE HYDROCHLORIDE [Concomitant]
     Dosage: UNK UNK, QD
     Dates: start: 20110627
  4. VITAMIN C                          /00008001/ [Concomitant]
     Dosage: UNK UNK, QD
     Dates: start: 20110627
  5. PROAIR HFA [Concomitant]
     Dosage: UNK UNK, QHS
     Dates: start: 20110627
  6. PRAVASTATIN [Concomitant]
     Dosage: UNK UNK, QHS
     Dates: start: 20120118
  7. VITAMIN A D [Concomitant]
     Dosage: UNK UNK, QD
     Dates: start: 20100611
  8. PLAQUENIL [Concomitant]
     Dosage: 200 MG, BID
     Dates: start: 20110627
  9. ASPIRIN [Concomitant]
     Dosage: 81 MG, UNK
     Dates: start: 20100611
  10. CALCIUM [Concomitant]
     Dosage: 1000 MG, QD
     Dates: start: 20100611
  11. PROCARDIA                          /00340701/ [Concomitant]
     Dosage: 60 MG, QD
     Dates: start: 20110627
  12. IBUPROFEN [Concomitant]
     Dosage: 800 MG, UNK
     Dates: start: 20110627
  13. AZULFIDINE [Concomitant]
     Dosage: 500 MG, UNK
  14. ARAVA [Concomitant]
     Dosage: 10 MG, UNK
  15. METHADONE HCL [Concomitant]
     Dosage: 10 MG, UNK
     Dates: start: 20100611
  16. ENBREL [Suspect]
     Indication: RHEUMATOID ARTHRITIS
     Dosage: 50 MG, QWK
     Route: 058
     Dates: start: 20110601
  17. FISH OIL [Concomitant]
     Dosage: UNK UNK, QD
     Dates: start: 20110627

REACTIONS (6)
  - RED BLOOD CELL SEDIMENTATION RATE INCREASED [None]
  - RED BLOOD CELL COUNT ABNORMAL [None]
  - ALOPECIA [None]
  - C-REACTIVE PROTEIN ABNORMAL [None]
  - RED CELL DISTRIBUTION WIDTH ABNORMAL [None]
  - LYMPHOCYTE COUNT ABNORMAL [None]
